FAERS Safety Report 8005435-6 (Version None)
Quarter: 2011Q4

REPORT INFORMATION
  Report Type: 
  Country: None (occurrence: None)
  Receive Date: 20111223
  Receipt Date: 20111222
  Transmission Date: 20120403
  Serious: Yes (Other)
  Sender: FDA-Public Use
  Company Number: JP-B.I. PHARMACEUTICALS,INC./RIDGEFIELD-2011-BP-26848NB

PATIENT
  Sex: Male
  Weight: 56.5 kg

DRUGS (9)
  1. LASIX [Concomitant]
     Indication: CARDIAC FAILURE CHRONIC
     Dosage: 10 MG
     Route: 048
  2. BAYCARON [Concomitant]
     Indication: CARDIAC FAILURE CHRONIC
     Dosage: 12.5 MG
     Route: 048
  3. OPALMON [Concomitant]
     Indication: CARDIAC FAILURE CHRONIC
     Dosage: 10 MCG
     Route: 048
  4. OMEPRAZOLE [Concomitant]
     Dosage: 10 MG
     Route: 048
  5. PRADAXA [Suspect]
     Indication: ATRIAL FIBRILLATION
     Dosage: 220 MG
     Route: 048
     Dates: start: 20110701
  6. CILNIDIPINE [Concomitant]
     Indication: CARDIAC FAILURE CHRONIC
     Dosage: 10 MG
     Route: 048
  7. METHYCOBAL [Concomitant]
     Dosage: 1500 MCG
     Route: 048
  8. ASPIRIN [Suspect]
     Indication: VERTEBRAL ARTERY STENOSIS
     Dosage: 100 MG
     Route: 048
     Dates: start: 20071109
  9. MICARDIS [Concomitant]
     Indication: CARDIAC FAILURE CHRONIC
     Dosage: 20 MG
     Route: 048

REACTIONS (2)
  - GASTRIC HAEMORRHAGE [None]
  - RENAL IMPAIRMENT [None]
